FAERS Safety Report 4614629-9 (Version None)
Quarter: 2005Q2

REPORT INFORMATION
  Report Type: 
  Country: None (occurrence: None)
  Receive Date: 20050303
  Receipt Date: 20040326
  Transmission Date: 20051028
  Serious: Yes (Hospitalization)
  Sender: FDA-Public Use
  Company Number: WAES 0403USA02436

PATIENT
  Age: 52 Year
  Sex: Male

DRUGS (5)
  1. PRINIVIL [Suspect]
     Indication: HYPERTENSION
     Dosage: 20 MG/DAILY/PO
     Route: 048
     Dates: start: 20040229, end: 20040323
  2. GLUCOVANCE [Concomitant]
  3. LEVOTHROID [Concomitant]
  4. ZOCOR [Concomitant]
  5. ASPIRIN [Concomitant]

REACTIONS (3)
  - COUGH [None]
  - FATIGUE [None]
  - RETCHING [None]
